FAERS Safety Report 5022149-5 (Version None)
Quarter: 2006Q2

REPORT INFORMATION
  Report Type: 
  Country: None (occurrence: None)
  Receive Date: 20060605
  Receipt Date: 20060524
  Transmission Date: 20061013
  Serious: Yes (Disabling)
  Sender: FDA-Public Use
  Company Number: 2006067898

PATIENT
  Age: 59 Year
  Sex: Female

DRUGS (5)
  1. AROMASIN [Suspect]
     Indication: BREAST CANCER
     Dates: start: 20050812, end: 20060309
  2. FLUOXETINE [Concomitant]
  3. SEREVENT [Concomitant]
  4. BECOTIDE             (BECLOMETASOEN DIPROPIONATE) [Concomitant]
  5. LEVOTHYROXINE SODIUM [Concomitant]

REACTIONS (3)
  - BALANCE DISORDER [None]
  - FALL [None]
  - TREMOR [None]
